FAERS Safety Report 23340566 (Version 5)
Quarter: 2024Q3

REPORT INFORMATION
  Report Type: Report from Study
  Country: US (occurrence: US)
  Receive Date: 20231227
  Receipt Date: 20240906
  Transmission Date: 20241016
  Serious: Yes (Other)
  Sender: ROCHE
  Company Number: US-ROCHE-3427364

PATIENT
  Age: 81 Year
  Sex: Female
  Weight: 57.15 kg

DRUGS (4)
  1. ACTEMRA [Suspect]
     Active Substance: TOCILIZUMAB
     Indication: Giant cell arteritis
     Route: 058
  2. ACTEMRA [Suspect]
     Active Substance: TOCILIZUMAB
     Route: 058
  3. ACTEMRA [Suspect]
     Active Substance: TOCILIZUMAB
     Dosage: THE PATIENT STATED IT IS 162 MG/0.9 ML ACT PEN INJECTED INTO THE ABDOMEN
     Route: 058
     Dates: start: 2023
  4. LEVOTHYROXINE [Concomitant]
     Active Substance: LEVOTHYROXINE\LEVOTHYROXINE SODIUM
     Indication: Hypothyroidism
     Route: 048

REACTIONS (6)
  - Balance disorder [Unknown]
  - Product administered at inappropriate site [Unknown]
  - Incorrect dose administered [Unknown]
  - Swelling [Unknown]
  - Vision blurred [Unknown]
  - Deafness [Unknown]
